FAERS Safety Report 5235219-3 (Version None)
Quarter: 2007Q1

REPORT INFORMATION
  Report Type: 
  Country: None (occurrence: None)
  Receive Date: 20070208
  Receipt Date: 20070208
  Transmission Date: 20070707
  Serious: Yes (Life-Threatening)
  Sender: FDA-Public Use
  Company Number: None

PATIENT
  Age: 46 Year
  Sex: Male
  Weight: 85.2762 kg

DRUGS (2)
  1. PHENYTOIN [Suspect]
     Indication: EPILEPSY
     Dosage: 600MG AT BEDTIME PO
     Route: 048
     Dates: start: 20051201, end: 20070131
  2. ACIPHEX/PROTONIX/PRILOSEC OTC 20MG/20MG/10MG [Suspect]
     Indication: OESOPHAGITIS
     Dosage: 20MG/20MG/20MG BID/QD/QD PO
     Route: 048
     Dates: start: 20061201, end: 20070130

REACTIONS (8)
  - CHEST PAIN [None]
  - DIZZINESS [None]
  - DRUG INTERACTION [None]
  - DRUG LEVEL INCREASED [None]
  - GASTROOESOPHAGEAL REFLUX DISEASE [None]
  - OESOPHAGITIS [None]
  - VERTIGO [None]
  - VOMITING [None]
